FAERS Safety Report 4998213-3 (Version None)
Quarter: 2006Q2

REPORT INFORMATION
  Report Type: 
  Country: None (occurrence: None)
  Receive Date: 20060508
  Receipt Date: 20060425
  Transmission Date: 20061013
  Serious: Yes (Other)
  Sender: FDA-Public Use
  Company Number: 2006056629

PATIENT
  Age: 76 Year
  Sex: Female
  Weight: 66.6788 kg

DRUGS (10)
  1. CELEBREX [Suspect]
     Indication: ARTHRITIS
     Dosage: 200 MG (200 MG, 1 IN 1 D), ORAL
     Route: 048
     Dates: start: 20050101
  2. BEXTRA [Suspect]
     Indication: ARTHRITIS
     Dosage: 10 MG (10 MG, 1 IN 1 D), ORAL
     Route: 048
  3. ULTRACET [Suspect]
     Indication: PAIN
  4. DIGOXIN [Concomitant]
  5. LIPITOR [Concomitant]
  6. FOSAMAX [Concomitant]
  7. SYNTHROID [Concomitant]
  8. COUMADIN [Concomitant]
  9. VITAMINS (VITAMINS) [Concomitant]
  10. METOPROLOL SUCCINATE [Concomitant]

REACTIONS (15)
  - AORTIC VALVE REPLACEMENT [None]
  - ARTHRITIS [None]
  - ARTHROPATHY [None]
  - CARDIAC DISORDER [None]
  - CONDITION AGGRAVATED [None]
  - CONSTIPATION [None]
  - DIZZINESS [None]
  - DRUG EFFECT DECREASED [None]
  - HYPOAESTHESIA [None]
  - MITRAL VALVE REPLACEMENT [None]
  - OEDEMA PERIPHERAL [None]
  - PARAESTHESIA [None]
  - PHARMACEUTICAL PRODUCT COMPLAINT [None]
  - POOR QUALITY DRUG ADMINISTERED [None]
  - TRICUSPID VALVE REPAIR [None]
